FAERS Safety Report 9232139 (Version 1)
Quarter: 2013Q2

REPORT INFORMATION
  Report Type: Spontaneous
  Country: US (occurrence: US)
  Receive Date: 20130415
  Receipt Date: 20130415
  Transmission Date: 20140414
  Serious: No
  Sender: FDA-Public Use
  Company Number: US-PFIZER INC-2013109149

PATIENT
  Age: 71 Year
  Sex: Female
  Weight: 108 kg

DRUGS (1)
  1. PRISTIQ [Suspect]
     Indication: SLEEP DISORDER
     Dosage: 50 MG, 1X/DAY
     Route: 048
     Dates: start: 20130404, end: 20130405

REACTIONS (9)
  - Wrong technique in drug usage process [Unknown]
  - Product quality issue [Unknown]
  - Dizziness [Recovered/Resolved]
  - Headache [Unknown]
  - Fatigue [Unknown]
  - Musculoskeletal stiffness [Unknown]
  - Dysphagia [Unknown]
  - Off label use [Unknown]
  - Drug ineffective for unapproved indication [Unknown]
